FAERS Safety Report 4813753-5 (Version None)
Quarter: 2005Q4

REPORT INFORMATION
  Report Type: 
  Country: None (occurrence: None)
  Receive Date: 20051028
  Receipt Date: 20050315
  Transmission Date: 20060501
  Serious: No
  Sender: FDA-Public Use
  Company Number: US-GLAXOSMITHKLINE-A0549877A

PATIENT
  Age: 59 Year
  Sex: Male
  Weight: 68.2 kg

DRUGS (3)
  1. ADVAIR DISKUS 100/50 [Suspect]
     Indication: ASTHMA
     Dosage: 1PUFF PER DAY
     Route: 055
     Dates: end: 20050301
  2. FLOVENT [Concomitant]
     Indication: ASTHMA
     Dosage: 220MCG THREE TIMES PER DAY
     Route: 055
  3. BENAZEPRIL HCL [Concomitant]

REACTIONS (1)
  - COUGH [None]
